FAERS Safety Report 4907414-1 (Version None)
Quarter: 2006Q1

REPORT INFORMATION
  Report Type: 
  Country: None (occurrence: None)
  Receive Date: 20060210
  Receipt Date: 20060130
  Transmission Date: 20060701
  Serious: Yes (Hospitalization, Other)
  Sender: FDA-Public Use
  Company Number: FR-BRISTOL-MYERS SQUIBB COMPANY-13266606

PATIENT
  Age: 72 Year
  Sex: Male
  Weight: 72 kg

DRUGS (7)
  1. ELISOR TABS 20 MG [Suspect]
     Indication: MIXED HYPERLIPIDAEMIA
     Route: 048
  2. IKOREL [Suspect]
  3. AMLOR [Suspect]
  4. CORDARONE [Suspect]
     Indication: TACHYCARDIA
  5. SECTRAL [Suspect]
  6. KARDEGIC [Suspect]
  7. NITROGLYCERIN [Concomitant]

REACTIONS (6)
  - ANGIOPATHY [None]
  - CHEST PAIN [None]
  - HYPOXIA [None]
  - LUNG DISORDER [None]
  - PNEUMONIA [None]
  - PYREXIA [None]
